FAERS Safety Report 8148715-6 (Version None)
Quarter: 2012Q1

REPORT INFORMATION
  Report Type: 
  Country: None (occurrence: None)
  Receive Date: 20120218
  Receipt Date: 20110729
  Transmission Date: 20120608
  Serious: No
  Sender: FDA-Public Use
  Company Number: US-ALLERGAN-1107099US

PATIENT
  Age: 80 Year
  Sex: Male

DRUGS (1)
  1. BOTULINUM TOXIN TYPE A [Suspect]
     Indication: TORTICOLLIS
     Dosage: 200 UNITS, SINGLE
     Route: 030
     Dates: start: 20110208, end: 20110208

REACTIONS (17)
  - BACK PAIN [None]
  - VISION BLURRED [None]
  - HEADACHE [None]
  - DRUG INEFFECTIVE [None]
  - FEELING ABNORMAL [None]
  - MUSCLE TIGHTNESS [None]
  - MUSCULOSKELETAL STIFFNESS [None]
  - NECK PAIN [None]
  - FATIGUE [None]
  - DIZZINESS [None]
  - MUSCULAR WEAKNESS [None]
  - LIMB DISCOMFORT [None]
  - HEAD DISCOMFORT [None]
  - INCONTINENCE [None]
  - DISTURBANCE IN ATTENTION [None]
  - MUSCULOSKELETAL DISCOMFORT [None]
  - PAIN [None]
